FAERS Safety Report 13400358 (Version 1)
Quarter: 2017Q2

REPORT INFORMATION
  Report Type: Spontaneous
  Country: CH (occurrence: CH)
  Receive Date: 20170404
  Receipt Date: 20170404
  Transmission Date: 20170830
  Serious: Yes (Other)
  Sender: FDA-Public Use
  Company Number: CH-AMGEN-CHESP2017048363

PATIENT
  Age: 52 Year

DRUGS (1)
  1. PROLIA [Suspect]
     Active Substance: DENOSUMAB
     Indication: OSTEOPOROSIS
     Dosage: 60 MG, Q6MO
     Route: 058

REACTIONS (9)
  - Pain in extremity [Unknown]
  - Spinal fracture [Unknown]
  - Fractured sacrum [Unknown]
  - Hepatic cirrhosis [Unknown]
  - Chronic hepatitis C [Recovered/Resolved]
  - Complex regional pain syndrome [Unknown]
  - Drug effect incomplete [Unknown]
  - Pelvic fracture [Unknown]
  - Lower limb fracture [Unknown]

NARRATIVE: CASE EVENT DATE: 201204
